FAERS Safety Report 16111581 (Version 1)
Quarter: 2019Q2

REPORT INFORMATION
  Report Type: Spontaneous
  Country: US (occurrence: US)
  Receive Date: 20190322
  Receipt Date: 20190322
  Transmission Date: 20190711
  Serious: Yes (Hospitalization)
  Sender: FDA-Public Use
  Company Number: None

PATIENT
  Age: 87 Year
  Sex: Female

DRUGS (2)
  1. IBRANCE [Suspect]
     Active Substance: PALBOCICLIB
     Indication: BREAST CANCER
     Dosage: ?          OTHER FREQUENCY:QDX21DAY 7 OFF;?
     Route: 048
     Dates: start: 20171209, end: 20190311
  2. LETROZOLE 2.5 MG [Concomitant]
     Active Substance: LETROZOLE

REACTIONS (2)
  - Pneumonia [None]
  - Renal failure [None]

NARRATIVE: CASE EVENT DATE: 20190311
